FAERS Safety Report 24534738 (Version 1)
Quarter: 2024Q4

REPORT INFORMATION
  Report Type: Spontaneous
  Country: IN (occurrence: IN)
  Receive Date: 20241022
  Receipt Date: 20241022
  Transmission Date: 20250115
  Serious: Yes (Hospitalization)
  Sender: SANDOZ
  Company Number: IN-MLMSERVICE-20190918-1960692-1

PATIENT
  Age: 30 Year
  Sex: Male

DRUGS (4)
  1. CIPROFLOXACIN [Suspect]
     Active Substance: CIPROFLOXACIN
     Indication: Pyrexia
     Dosage: UNK
     Route: 065
  2. CIPROFLOXACIN [Suspect]
     Active Substance: CIPROFLOXACIN
     Indication: Asthenia
  3. ACETAMINOPHEN [Concomitant]
     Active Substance: ACETAMINOPHEN
     Indication: Pyrexia
     Dosage: UNK
     Route: 065
  4. ACETAMINOPHEN [Concomitant]
     Active Substance: ACETAMINOPHEN
     Indication: Asthenia

REACTIONS (5)
  - Cutaneous vasculitis [Recovering/Resolving]
  - Oedema peripheral [Recovering/Resolving]
  - Type I hypersensitivity [Recovering/Resolving]
  - Cross sensitivity reaction [Recovering/Resolving]
  - Product use in unapproved indication [Unknown]
